FAERS Safety Report 4504206-2 (Version None)
Quarter: 2004Q4

REPORT INFORMATION
  Report Type: 
  Country: None (occurrence: None)
  Receive Date: 20041118
  Receipt Date: 20041108
  Transmission Date: 20050328
  Serious: Yes (Other)
  Sender: FDA-Public Use
  Company Number: KE-NOVOPROD-240392

PATIENT
  Age: 45 Year
  Sex: Male
  Weight: 75 kg

DRUGS (5)
  1. MIXTARD HUMAN 70/30 [Suspect]
     Indication: INSULIN-REQUIRING TYPE II DIABETES MELLITUS
     Dosage: 40 IU, QD
     Dates: start: 20041004
  2. MIXTARD HUMAN 70/30 [Suspect]
     Dosage: 40 U, UNK
     Dates: start: 20020101, end: 20041003
  3. GLUCOPHAGE [Concomitant]
     Indication: INSULIN-REQUIRING TYPE II DIABETES MELLITUS
     Dosage: 1000 MG, QD
  4. ENALAPRIL [Concomitant]
     Dosage: 2.5 MG, QD
  5. ASPIRIN [Concomitant]
     Dosage: 15 MG, QD

REACTIONS (10)
  - EXCORIATION [None]
  - FALL [None]
  - FEELING ABNORMAL [None]
  - INJURY [None]
  - LOSS OF CONSCIOUSNESS [None]
  - NAUSEA [None]
  - PARAESTHESIA ORAL [None]
  - PERIORBITAL DISORDER [None]
  - PERIORBITAL HAEMATOMA [None]
  - PRURITUS GENERALISED [None]
